FAERS Safety Report 11423183 (Version 4)
Quarter: 2015Q3

REPORT INFORMATION
  Report Type: Spontaneous
  Country: BR (occurrence: BR)
  Receive Date: 20150827
  Receipt Date: 20150930
  Transmission Date: 20151125
  Serious: Yes (Other)
  Sender: FDA-Public Use
  Company Number: BR-PFIZER INC-2015280397

PATIENT
  Sex: Female

DRUGS (2)
  1. LYRICA [Suspect]
     Active Substance: PREGABALIN
     Indication: SPINAL DISORDER
     Dosage: UNK
     Route: 048
     Dates: start: 20150810, end: 2015
  2. LYRICA [Suspect]
     Active Substance: PREGABALIN
     Indication: FIBROMYALGIA

REACTIONS (13)
  - Urinary incontinence [Unknown]
  - Agitation [Unknown]
  - Mobility decreased [Unknown]
  - Nervousness [Recovered/Resolved]
  - Somnolence [Recovered/Resolved]
  - Crying [Recovered/Resolved]
  - Feeling abnormal [Unknown]
  - Pyrexia [Unknown]
  - Fear [Unknown]
  - Lung disorder [Not Recovered/Not Resolved]
  - Hypotonia [Unknown]
  - Cough [Not Recovered/Not Resolved]
  - Pain [Unknown]

NARRATIVE: CASE EVENT DATE: 2015
